FAERS Safety Report 9451035 (Version 1)
Quarter: 2013Q3

REPORT INFORMATION
  Report Type: Spontaneous
  Country: FR (occurrence: None)
  Receive Date: 20130807
  Receipt Date: 20130807
  Transmission Date: 20140515
  Serious: Yes (Hospitalization)
  Sender: FDA-Public Use
  Company Number: ENTC2013-0273

PATIENT
  Sex: Female

DRUGS (2)
  1. STALEVO (LEVODOPA, CARBIDOPA, ENTACAPONE) [Suspect]
     Indication: PARKINSON^S DISEASE
     Route: 048
     Dates: end: 201303
  2. VELMETIA [Concomitant]

REACTIONS (4)
  - Muscle spasms [None]
  - Intestinal obstruction [None]
  - Weight decreased [None]
  - Drug withdrawal syndrome [None]
